FAERS Safety Report 6549609-X (Version None)
Quarter: 2010Q1

REPORT INFORMATION
  Report Type: 
  Country: None (occurrence: None)
  Receive Date: 20100125
  Receipt Date: 20100120
  Transmission Date: 20100710
  Serious: Yes (Hospitalization)
  Sender: FDA-Public Use
  Company Number: SE-ROCHE-668013

PATIENT
  Sex: Female

DRUGS (3)
  1. BEVACIZUMAB [Suspect]
     Dosage: FORM: SOLUTION FOR INFUSION AND DOSE (PER PROTOCOL). LAST DOSE PRIOR TO SAE: 23 OCTOBER 2009.
     Route: 042
     Dates: start: 20090821
  2. CAPECITABINE [Suspect]
     Dosage: ON DAY 1 AND DAY 15 OF A CYCLE OF TWO WEEKS ON AND ONE WEEK OFF.(AS PER PROTOCOL)
     Route: 048
     Dates: start: 20090821
  3. OXALIPLATIN [Suspect]
     Dosage: FORM: INFUSION (PER PROTOCOL) GIVEN OVER 30-120 MINUTES (DAY 1 EVERY 3 WEEKS)
     Route: 042
     Dates: start: 20090821

REACTIONS (2)
  - DIARRHOEA [None]
  - FRACTURE [None]
